FAERS Safety Report 5803972-3 (Version None)
Quarter: 2008Q3

REPORT INFORMATION
  Report Type: 
  Country: None (occurrence: None)
  Receive Date: 20080703
  Receipt Date: 20080619
  Transmission Date: 20090109
  Serious: Yes (Hospitalization, Disabling)
  Sender: FDA-Public Use
  Company Number: 2008S1006173

PATIENT
  Age: 63 Year
  Sex: Female

DRUGS (4)
  1. PHOSPHOSODA FLAVOR NOT SPECIFIED [Suspect]
     Indication: COLONOSCOPY
     Dosage: 45 ML;X1;PO
     Route: 048
     Dates: start: 20040811, end: 20040811
  2. DULCOLAX [Suspect]
     Dosage: 2 UNIT;  PO
     Route: 048
     Dates: start: 20040811, end: 20040811
  3. HYDROCHLOROTHIAZIDE [Concomitant]
  4. LISINOPRIL [Concomitant]

REACTIONS (6)
  - BLOOD CREATININE INCREASED [None]
  - FATIGUE [None]
  - HYPERPHOSPHATAEMIA [None]
  - HYPOTENSION [None]
  - MALAISE [None]
  - NAUSEA [None]
